FAERS Safety Report 4715836-7 (Version None)
Quarter: 2005Q3

REPORT INFORMATION
  Report Type: 
  Country: None (occurrence: None)
  Receive Date: 20050715
  Receipt Date: 20050715
  Transmission Date: 20060218
  Serious: Yes (Life-Threatening)
  Sender: FDA-Public Use
  Company Number: None

PATIENT
  Sex: Male
  Weight: 120.5 kg

DRUGS (2)
  1. RIBAVIRIN [Suspect]
     Indication: HEPATITIS C
     Dosage: 600 MG QAM,QPM ORAL
     Route: 048
     Dates: start: 20040727, end: 20050329
  2. RIBAVIRIN [Suspect]
     Dosage: 600 MG QAM,QPM ORAL
     Route: 048
     Dates: start: 20050401, end: 20050628

REACTIONS (5)
  - ANAEMIA [None]
  - ASTHENIA [None]
  - CHEST PAIN [None]
  - DECREASED APPETITE [None]
  - DYSPNOEA [None]
